FAERS Safety Report 13802252 (Version 1)
Quarter: 2017Q3

REPORT INFORMATION
  Report Type: Spontaneous
  Country: US (occurrence: US)
  Receive Date: 20170728
  Receipt Date: 20170728
  Transmission Date: 20171127
  Serious: No
  Sender: FDA-Public Use
  Company Number: US-009507513-1707USA010994

PATIENT
  Age: 30 Year
  Sex: Female
  Weight: 68.03 kg

DRUGS (1)
  1. NEXPLANON [Suspect]
     Active Substance: ETONOGESTREL
     Dosage: UNK
     Route: 059
     Dates: start: 20170713

REACTIONS (6)
  - Joint stiffness [Unknown]
  - Complication associated with device [Unknown]
  - Implant site erythema [Unknown]
  - Implant site swelling [Unknown]
  - Implant site oedema [Unknown]
  - Implant site warmth [Unknown]

NARRATIVE: CASE EVENT DATE: 201707
